FAERS Safety Report 17063054 (Version 23)
Quarter: 2020Q3

REPORT INFORMATION
  Report Type: Report from Study
  Country: CN (occurrence: CN)
  Receive Date: 20191122
  Receipt Date: 20200908
  Transmission Date: 20201102
  Serious: Yes (Hospitalization)
  Sender: FDA-Public Use
  Company Number: CN-ROCHE-2476578

PATIENT
  Age: 56 Year
  Sex: Female
  Weight: 65 kg

DRUGS (42)
  1. LANSOPRAZOLE. [Concomitant]
     Active Substance: LANSOPRAZOLE
     Dates: start: 20191010, end: 20191010
  2. LANSOPRAZOLE. [Concomitant]
     Active Substance: LANSOPRAZOLE
     Dates: start: 20190919, end: 20190919
  3. LANSOPRAZOLE. [Concomitant]
     Active Substance: LANSOPRAZOLE
     Dates: start: 20190926, end: 20190926
  4. LANSOPRAZOLE. [Concomitant]
     Active Substance: LANSOPRAZOLE
     Dates: start: 20190829, end: 20190829
  5. LEUCOGEN (CHINA) [Concomitant]
     Indication: PROPHYLAXIS
     Dates: start: 20190830, end: 20191010
  6. PROMETHAZINE HYDROCHLORIDE. [Concomitant]
     Active Substance: PROMETHAZINE HYDROCHLORIDE
     Dates: start: 20190822, end: 20190822
  7. THYMOSIN ALPHA 1 [Concomitant]
     Dates: start: 20191126
  8. CALCIUM CARBONATE. [Concomitant]
     Active Substance: CALCIUM CARBONATE
     Dates: start: 20191126
  9. ATEZOLIZUMAB. [Suspect]
     Active Substance: ATEZOLIZUMAB
     Indication: TRIPLE NEGATIVE BREAST CANCER
     Dosage: MOST RECENT DOSE ON 10/OCT/2019
     Route: 041
     Dates: start: 20190815
  10. CIMETIDINE [Concomitant]
     Active Substance: CIMETIDINE
     Dates: start: 20190822, end: 20190822
  11. CIMETIDINE [Concomitant]
     Active Substance: CIMETIDINE
     Dates: start: 20190912, end: 20190912
  12. LANSOPRAZOLE. [Concomitant]
     Active Substance: LANSOPRAZOLE
     Dates: start: 20190822, end: 20190822
  13. LEUCOGEN (CHINA) [Concomitant]
     Dates: start: 20191108, end: 20191112
  14. LEVOFLOXACIN HYDROCHLORIDE [Concomitant]
     Active Substance: LEVOFLOXACIN HYDROCHLORIDE
     Dates: start: 20191018
  15. PROMETHAZINE HYDROCHLORIDE. [Concomitant]
     Active Substance: PROMETHAZINE HYDROCHLORIDE
     Dates: start: 20190912, end: 20190912
  16. PROMETHAZINE HYDROCHLORIDE. [Concomitant]
     Active Substance: PROMETHAZINE HYDROCHLORIDE
     Dates: start: 20190815, end: 20190815
  17. TROPISETRON HYDROCHLORIDE [Concomitant]
     Active Substance: TROPISETRON HYDROCHLORIDE
     Indication: PROPHYLAXIS
     Dates: start: 20191010, end: 20191010
  18. TROPISETRON HYDROCHLORIDE [Concomitant]
     Active Substance: TROPISETRON HYDROCHLORIDE
     Dates: start: 20190926, end: 20190926
  19. RECOMBINANT HUMAN GRANULOCYTE COLONY STIMULATING FACTOR (UNK INGREDIEN [Concomitant]
     Dates: start: 20190830, end: 20190908
  20. PACLITAXEL. [Suspect]
     Active Substance: PACLITAXEL
     Indication: TRIPLE NEGATIVE BREAST CANCER
     Dosage: ON 24/OCT/2019 LAST DOSE OF PACLITAXEL 90 MG/M2 ADMINISTERED PRIOR TO AE AND SAE ONSET
     Route: 042
     Dates: start: 20190815
  21. CIMETIDINE [Concomitant]
     Active Substance: CIMETIDINE
     Indication: PROPHYLAXIS
     Dates: start: 20190919, end: 20190919
  22. CIMETIDINE [Concomitant]
     Active Substance: CIMETIDINE
     Dates: start: 20191024, end: 20191024
  23. CIMETIDINE [Concomitant]
     Active Substance: CIMETIDINE
     Dates: start: 20190926, end: 20190926
  24. PANTOPRAZOLE SODIUM. [Concomitant]
     Active Substance: PANTOPRAZOLE SODIUM
     Dates: start: 20191126
  25. RECOMBINANT HUMAN GRANULOCYTE COLONY STIMULATING FACTOR (UNK INGREDIEN [Concomitant]
     Dates: start: 20190914, end: 20190915
  26. LANSOPRAZOLE. [Concomitant]
     Active Substance: LANSOPRAZOLE
     Dates: start: 20190912, end: 20190912
  27. TROPISETRON HYDROCHLORIDE [Concomitant]
     Active Substance: TROPISETRON HYDROCHLORIDE
     Dates: start: 20190822, end: 20190822
  28. PROMETHAZINE HYDROCHLORIDE. [Concomitant]
     Active Substance: PROMETHAZINE HYDROCHLORIDE
     Indication: PROPHYLAXIS
     Dates: start: 20190919, end: 20190919
  29. PROMETHAZINE HYDROCHLORIDE. [Concomitant]
     Active Substance: PROMETHAZINE HYDROCHLORIDE
     Dates: start: 20190829, end: 20190829
  30. PROMETHAZINE HYDROCHLORIDE. [Concomitant]
     Active Substance: PROMETHAZINE HYDROCHLORIDE
     Dates: start: 20191010, end: 20191010
  31. VITAMIN D3 [Concomitant]
     Active Substance: CHOLECALCIFEROL
     Dates: start: 20191126
  32. PROMETHAZINE HYDROCHLORIDE. [Concomitant]
     Active Substance: PROMETHAZINE HYDROCHLORIDE
     Dates: start: 20191024, end: 20191024
  33. PROMETHAZINE HYDROCHLORIDE. [Concomitant]
     Active Substance: PROMETHAZINE HYDROCHLORIDE
     Dates: start: 20190926, end: 20190926
  34. TROPISETRON HYDROCHLORIDE [Concomitant]
     Active Substance: TROPISETRON HYDROCHLORIDE
     Dates: start: 20190912, end: 20190912
  35. TROPISETRON HYDROCHLORIDE [Concomitant]
     Active Substance: TROPISETRON HYDROCHLORIDE
     Dates: start: 20191024, end: 20191024
  36. COMPOUND SULFAMETHOXAZOLE DISPERSIBLE TABLETS [Concomitant]
     Dates: start: 20191126
  37. CIMETIDINE [Concomitant]
     Active Substance: CIMETIDINE
     Dates: start: 20191010, end: 20191010
  38. CIMETIDINE [Concomitant]
     Active Substance: CIMETIDINE
     Dates: start: 20190815, end: 20190815
  39. CIMETIDINE [Concomitant]
     Active Substance: CIMETIDINE
     Dates: start: 20190829, end: 20190829
  40. LANSOPRAZOLE. [Concomitant]
     Active Substance: LANSOPRAZOLE
     Dates: start: 20191024, end: 20191024
  41. LEVOFLOXACIN HYDROCHLORIDE [Concomitant]
     Active Substance: LEVOFLOXACIN HYDROCHLORIDE
     Dates: start: 20191113
  42. TROPISETRON HYDROCHLORIDE [Concomitant]
     Active Substance: TROPISETRON HYDROCHLORIDE
     Dates: start: 20190919, end: 20190919

REACTIONS (2)
  - Renal impairment [Recovered/Resolved with Sequelae]
  - Urinary tract infection [Recovered/Resolved with Sequelae]

NARRATIVE: CASE EVENT DATE: 20191106
